FAERS Safety Report 25384795 (Version 5)
Quarter: 2025Q2

REPORT INFORMATION
  Report Type: Spontaneous
  Country: GB (occurrence: GB)
  Receive Date: 20250602
  Receipt Date: 20250623
  Transmission Date: 20250717
  Serious: No
  Sender: PFIZER
  Company Number: GB-PFIZER INC-202500110986

PATIENT
  Age: 62 Year

DRUGS (1)
  1. GENOTROPIN [Suspect]
     Active Substance: SOMATROPIN
     Indication: Hypopituitarism
     Dosage: 0.20 MG, 1X/DAY
     Route: 058
     Dates: start: 20240104

REACTIONS (2)
  - Alopecia [Unknown]
  - Fatigue [Unknown]
